FAERS Safety Report 5825736-7 (Version None)
Quarter: 2008Q3

REPORT INFORMATION
  Report Type: 
  Country: None (occurrence: None)
  Receive Date: 20080729
  Receipt Date: 20080715
  Transmission Date: 20090109
  Serious: Yes (Other)
  Sender: FDA-Public Use
  Company Number: TR-BAYER-200822859GPV

PATIENT
  Age: 21 Year
  Sex: Male

DRUGS (6)
  1. ASPIRIN [Suspect]
     Indication: INTENTIONAL DRUG MISUSE
     Dosage: UNIT DOSE: 300 MG
     Route: 042
     Dates: start: 19930101, end: 20020101
  2. ASPIRIN [Suspect]
     Dosage: UNIT DOSE: 300 MG
     Route: 042
     Dates: end: 20060101
  3. PERMASOL [Suspect]
     Indication: INTENTIONAL DRUG MISUSE
     Dosage: UNIT DOSE: 250 MG
     Route: 042
     Dates: end: 20060101
  4. PERMASOL [Suspect]
     Dosage: UNIT DOSE: 250 MG
     Route: 042
     Dates: start: 19930101, end: 20020101
  5. EFEDRIN [Suspect]
     Indication: INTENTIONAL DRUG MISUSE
     Dosage: UNIT DOSE: 50 MG
     Route: 042
     Dates: end: 20060101
  6. EFEDRIN [Suspect]
     Dosage: UNIT DOSE: 50 MG
     Route: 042
     Dates: start: 19930101, end: 20020101

REACTIONS (5)
  - BALANCE DISORDER [None]
  - BRADYKINESIA [None]
  - DYSPHONIA [None]
  - DYSTONIA [None]
  - FACIAL NERVE DISORDER [None]
